FAERS Safety Report 8887846 (Version 1)
Quarter: 2012Q4

REPORT INFORMATION
  Report Type: Spontaneous
  Country: US (occurrence: None)
  Receive Date: 20121101
  Receipt Date: 20121101
  Transmission Date: 20130627
  Serious: No
  Sender: FDA-Public Use
  Company Number: None

PATIENT
  Age: 78 Year
  Sex: Female

DRUGS (8)
  1. AMPYRA [Suspect]
     Indication: MULTIPLE SCLEROSIS
     Route: 048
     Dates: start: 20121004, end: 20121012
  2. AMANTADINE [Concomitant]
  3. HCTZ [Concomitant]
  4. WARFARIN [Concomitant]
  5. ALENDRONATE [Concomitant]
  6. GABAPENTIN [Concomitant]
  7. TRAZODONE [Concomitant]
  8. CALCIUM + VITAMIN D [Concomitant]

REACTIONS (5)
  - Dizziness [None]
  - Asthenia [None]
  - Heart rate increased [None]
  - Urinary tract infection [None]
  - Impaired driving ability [None]
